FAERS Safety Report 4861374-0 (Version None)
Quarter: 2005Q4

REPORT INFORMATION
  Report Type: 
  Country: None (occurrence: None)
  Receive Date: 20051220
  Receipt Date: 20051213
  Transmission Date: 20060501
  Serious: Yes (Hospitalization)
  Sender: FDA-Public Use
  Company Number: AU-ROCHE-428420

PATIENT
  Age: 79 Year
  Sex: Female

DRUGS (4)
  1. CEFTRIAXONE [Suspect]
     Route: 042
     Dates: start: 20040321, end: 20040322
  2. AMOXIL [Suspect]
     Route: 042
     Dates: start: 20040321, end: 20040322
  3. FLAGYL [Suspect]
     Route: 042
     Dates: start: 20040321, end: 20040322
  4. TRAMADOL HYDROCHLORIDE [Concomitant]
     Indication: SENSORY DISTURBANCE
     Route: 042
     Dates: start: 20040321

REACTIONS (2)
  - RASH MACULO-PAPULAR [None]
  - URTICARIA [None]
